FAERS Safety Report 5238079-X (Version None)
Quarter: 2007Q1

REPORT INFORMATION
  Report Type: 
  Country: None (occurrence: None)
  Receive Date: 20070209
  Receipt Date: 20070209
  Transmission Date: 20070707
  Serious: Yes (Hospitalization, Other)
  Sender: FDA-Public Use
  Company Number: None

PATIENT
  Age: 17 Year
  Sex: Female
  Weight: 77.1115 kg

DRUGS (1)
  1. MINOCYCLINE HCL [Suspect]
     Indication: ACNE
     Dosage: 1 PILL TWICE A DAY PO
     Route: 048
     Dates: start: 20060901, end: 20070116

REACTIONS (5)
  - DIPLOPIA [None]
  - DIZZINESS [None]
  - HEADACHE [None]
  - INNER EAR DISORDER [None]
  - STRABISMUS [None]
